FAERS Safety Report 10930252 (Version 1)
Quarter: 2015Q1

REPORT INFORMATION
  Report Type: Spontaneous
  Country: US (occurrence: None)
  Receive Date: 20150318
  Receipt Date: 20150318
  Transmission Date: 20150721
  Serious: No
  Sender: FDA-Public Use
  Company Number: 1564196

PATIENT
  Age: 14 Month
  Sex: Female

DRUGS (1)
  1. ANTI-BACTERIAL GENTLE FOAMING HAND FRESH PICKED GARDEN HERBS [Suspect]
     Active Substance: TRICLOSAN
     Route: 048
     Dates: start: 201406

REACTIONS (7)
  - Musculoskeletal stiffness [None]
  - Tremor [None]
  - Feeling cold [None]
  - Failure of child resistant mechanism for pharmaceutical product [None]
  - Cyanosis [None]
  - Accidental exposure to product by child [None]
  - Crying [None]

NARRATIVE: CASE EVENT DATE: 201406
